FAERS Safety Report 10815040 (Version 1)
Quarter: 2015Q1

REPORT INFORMATION
  Report Type: Spontaneous
  Country: GB (occurrence: GB)
  Receive Date: 20150218
  Receipt Date: 20150218
  Transmission Date: 20150721
  Serious: Yes (Life-Threatening, Hospitalization)
  Sender: FDA-Public Use
  Company Number: GB-TEVA-540114ISR

PATIENT
  Age: 86 Year
  Sex: Female

DRUGS (11)
  1. FUROSEMIDE. [Concomitant]
     Active Substance: FUROSEMIDE
  2. WARFARIN [Suspect]
     Active Substance: WARFARIN
     Indication: ATRIAL FIBRILLATION
     Route: 048
     Dates: start: 20091127, end: 20150130
  3. ATORVASTATIN [Concomitant]
     Active Substance: ATORVASTATIN
  4. ERYTHROMYCIN. [Concomitant]
     Active Substance: ERYTHROMYCIN
     Indication: CELLULITIS
  5. BENDROFLUAZIDE [Concomitant]
     Active Substance: BENDROFLUMETHIAZIDE
  6. FERROUS SULFATE [Concomitant]
     Active Substance: FERROUS SULFATE\FERROUS SULFATE, DRIED
  7. OMEPRAZOLE. [Concomitant]
     Active Substance: OMEPRAZOLE
  8. PARACETAMOL [Concomitant]
     Active Substance: ACETAMINOPHEN
  9. BISOPROLOL [Concomitant]
     Active Substance: BISOPROLOL
  10. IRBESARTAN. [Concomitant]
     Active Substance: IRBESARTAN
  11. DOXYCYCLINE. [Concomitant]
     Active Substance: DOXYCYCLINE
     Indication: CELLULITIS

REACTIONS (4)
  - Mobility decreased [Unknown]
  - International normalised ratio increased [Unknown]
  - Speech disorder [Unknown]
  - Subarachnoid haemorrhage [Not Recovered/Not Resolved]

NARRATIVE: CASE EVENT DATE: 20150130
